FAERS Safety Report 25915781 (Version 1)
Quarter: 2025Q4

REPORT INFORMATION
  Report Type: Spontaneous
  Country: US (occurrence: US)
  Receive Date: 20251013
  Receipt Date: 20251013
  Transmission Date: 20260118
  Serious: Yes (Other)
  Sender: SANOFI AVENTIS
  Company Number: US-SA-2025SA303825

PATIENT
  Age: 44 Year
  Sex: Male

DRUGS (2)
  1. ALPROLIX [Suspect]
     Active Substance: EFTRENONACOG ALFA
     Indication: Factor IX deficiency
     Dosage: 8850 UNITS (7965-9735) Q10SLOW IV PUSH EVERY 10 DAYS AS NEEDED FOR BLEEDING OR AS DIRECTED BY HEME C
     Route: 042
     Dates: start: 202312
  2. ALPROLIX [Suspect]
     Active Substance: EFTRENONACOG ALFA
     Indication: Factor IX deficiency
     Dosage: 8850 UNITS (7965-9735) Q10SLOW IV PUSH EVERY 10 DAYS AS NEEDED FOR BLEEDING OR AS DIRECTED BY HEME C
     Route: 042
     Dates: start: 202312

REACTIONS (2)
  - Muscle haemorrhage [Unknown]
  - Haemorrhage [Unknown]

NARRATIVE: CASE EVENT DATE: 20250725
